FAERS Safety Report 5632045-8 (Version None)
Quarter: 2008Q1

REPORT INFORMATION
  Report Type: 
  Country: None (occurrence: None)
  Receive Date: 20080220
  Receipt Date: 20080207
  Transmission Date: 20080703
  Serious: Yes (Other)
  Sender: FDA-Public Use
  Company Number: US-BAYER-200810575BCC

PATIENT
  Age: 75 Year
  Sex: Female
  Weight: 66 kg

DRUGS (3)
  1. ALKA SELTZER PM EFFERVESCENT TABLETS [Suspect]
     Indication: PAIN
     Route: 048
     Dates: start: 20080202
  2. ALKA SELTZER PM EFFERVESCENT TABLETS [Suspect]
     Route: 048
     Dates: start: 20080203
  3. MAXZIDE [Concomitant]

REACTIONS (2)
  - DEAFNESS UNILATERAL [None]
  - HEADACHE [None]
